FAERS Safety Report 9558595 (Version 1)
Quarter: 2013Q3

REPORT INFORMATION
  Report Type: Spontaneous
  Country: US (occurrence: US)
  Receive Date: 20130926
  Receipt Date: 20130926
  Transmission Date: 20140515
  Serious: No
  Sender: FDA-Public Use
  Company Number: US-BIOGENIDEC-2013BI044484

PATIENT
  Sex: Female

DRUGS (6)
  1. TECFIDERA [Suspect]
     Indication: MULTIPLE SCLEROSIS
     Route: 048
     Dates: start: 20130504
  2. AMANTADINE [Concomitant]
  3. PAXIL [Concomitant]
  4. TRANXENE [Concomitant]
  5. NEURONTIN [Concomitant]
  6. BACLOFEN [Concomitant]

REACTIONS (10)
  - Hypoaesthesia [Unknown]
  - Nervousness [Unknown]
  - Balance disorder [Unknown]
  - Tremor [Unknown]
  - Diarrhoea [Unknown]
  - Insomnia [Unknown]
  - Fatigue [Unknown]
  - Anxiety [Unknown]
  - Paraesthesia [Unknown]
  - Lacrimation increased [Unknown]
